FAERS Safety Report 4544172-7 (Version None)
Quarter: 2005Q1

REPORT INFORMATION
  Report Type: 
  Country: None (occurrence: None)
  Receive Date: 20050104
  Receipt Date: 20041124
  Transmission Date: 20050727
  Serious: Yes (Hospitalization, Other)
  Sender: FDA-Public Use
  Company Number: PHNU2004DE03948

PATIENT
  Age: 1 Year
  Sex: Male
  Weight: 11 kg

DRUGS (2)
  1. CHLORAL HYDRATE [Suspect]
  2. CLOZARIL [Suspect]
     Indication: MEDICATION ERROR
     Dosage: 100 MG
     Dates: start: 20041101, end: 20041101

REACTIONS (6)
  - AGITATION [None]
  - DRUG TOXICITY [None]
  - INFECTION [None]
  - RESPIRATORY TRACT INFECTION [None]
  - SINUS TACHYCARDIA [None]
  - SOMNOLENCE [None]
